FAERS Safety Report 24200638 (Version 1)
Quarter: 2024Q3

REPORT INFORMATION
  Report Type: Spontaneous
  Country: US (occurrence: US)
  Receive Date: 20240812
  Receipt Date: 20240812
  Transmission Date: 20241016
  Serious: No
  Sender: ANI
  Company Number: US-ANIPHARMA-2024-US-039054

PATIENT
  Age: 76 Year
  Sex: Female
  Weight: 81.65 kg

DRUGS (5)
  1. CORTICOTROPIN [Suspect]
     Active Substance: CORTICOTROPIN
     Indication: Polychondritis
     Dosage: EVERY 3 DAYS
     Route: 030
     Dates: start: 20240617
  2. LANTUS [Concomitant]
     Active Substance: INSULIN GLARGINE
     Dosage: 15 UNITS AT BEDTIME
  3. UNSPECIFIED INGREDIENT [Concomitant]
     Active Substance: UNSPECIFIED INGREDIENT
     Dosage: ONCE A WEEK
  4. over the counter allergy medication [Concomitant]
  5. UNSPECIFIED INGREDIENT [Concomitant]
     Active Substance: UNSPECIFIED INGREDIENT

REACTIONS (2)
  - Joint swelling [Not Recovered/Not Resolved]
  - Erythema [Not Recovered/Not Resolved]

NARRATIVE: CASE EVENT DATE: 20240710
